FAERS Safety Report 14902040 (Version 1)
Quarter: 2018Q2

REPORT INFORMATION
  Report Type: Spontaneous
  Country: JP (occurrence: JP)
  Receive Date: 20180516
  Receipt Date: 20180516
  Transmission Date: 20180711
  Serious: Yes (Other)
  Sender: FDA-Public Use
  Company Number: JP-JNJFOC-20180514992

PATIENT
  Sex: Female

DRUGS (1)
  1. SIMPONI [Suspect]
     Active Substance: GOLIMUMAB
     Indication: RHEUMATOID ARTHRITIS
     Route: 058
     Dates: start: 2017

REACTIONS (6)
  - Feeling cold [Unknown]
  - Asthenia [Unknown]
  - Blood pressure increased [Unknown]
  - Renal impairment [Unknown]
  - Cystitis [Unknown]
  - Impaired healing [Unknown]
